FAERS Safety Report 4834552-4 (Version None)
Quarter: 2005Q4

REPORT INFORMATION
  Report Type: 
  Country: None (occurrence: None)
  Receive Date: 20051122
  Receipt Date: 20050307
  Transmission Date: 20060501
  Serious: No
  Sender: FDA-Public Use
  Company Number: US-BRISTOL-MYERS SQUIBB COMPANY-12888459

PATIENT
  Age: 76 Year
  Sex: Male
  Weight: 73 kg

DRUGS (6)
  1. PRAVACHOL [Suspect]
     Indication: BLOOD CHOLESTEROL INCREASED
     Route: 048
  2. ATENOLOL [Concomitant]
     Dosage: DURATION - ^YEARS^
     Route: 048
  3. FLOMAX [Concomitant]
     Dosage: DURATION - ^FOR THE LAST YEAR^
  4. LIPITOR [Concomitant]
     Dosage: DURATION - ^FOR THE LAST YEAR^
  5. ASPIRIN [Concomitant]
     Dosage: ^BABY ASPIRIN^
  6. ZETIA [Concomitant]
     Dosage: DURATION - ^FOR THE LAST YEAR^

REACTIONS (2)
  - MUSCLE SPASMS [None]
  - PAIN IN EXTREMITY [None]
